FAERS Safety Report 8923247 (Version 4)
Quarter: 2013Q1

REPORT INFORMATION
  Report Type: Spontaneous
  Country: US (occurrence: US)
  Receive Date: 20121124
  Receipt Date: 20130108
  Transmission Date: 20140127
  Serious: Yes (Hospitalization)
  Sender: FDA-Public Use
  Company Number: PHEH2012US022917

PATIENT
  Sex: Male

DRUGS (1)
  1. EXTAVIA [Suspect]
     Indication: MULTIPLE SCLEROSIS
     Dosage: 0.25 MG, QOD
     Route: 058

REACTIONS (5)
  - Fall [Unknown]
  - Condition aggravated [Unknown]
  - Balance disorder [Unknown]
  - Dysphonia [Unknown]
  - Dysstasia [Unknown]
